FAERS Safety Report 20342921 (Version 1)
Quarter: 2022Q1

REPORT INFORMATION
  Report Type: Spontaneous
  Country: GB (occurrence: GB)
  Receive Date: 20220117
  Receipt Date: 20220117
  Transmission Date: 20220423
  Serious: Yes (Other)
  Sender: FDA-Public Use
  Company Number: None

PATIENT
  Sex: Male
  Weight: 87 kg

DRUGS (3)
  1. BIMATOPROST\TIMOLOL MALEATE [Suspect]
     Active Substance: BIMATOPROST\TIMOLOL MALEATE
     Indication: Product used for unknown indication
     Dosage: BIMATOPROST 300MICROGRAMS/ML / TIMOLOL 5MG/ML
  2. UMECLIDINIUM BROMIDE\VILANTEROL TRIFENATATE [Concomitant]
     Active Substance: UMECLIDINIUM BROMIDE\VILANTEROL TRIFENATATE
     Dosage: 1 DF QD 22MICROGRAMS/DOSE
     Route: 055
     Dates: start: 20211217
  3. VENTOLIN [Concomitant]
     Active Substance: ALBUTEROL SULFATE
     Dosage: 1 TO 2 PUFFS UP TO FOUR TIMES DAILY AS REQUIRED
     Route: 055
     Dates: start: 20211217

REACTIONS (2)
  - Wheezing [Unknown]
  - Dyspnoea [Recovering/Resolving]
